FAERS Safety Report 12223655 (Version 2)
Quarter: 2016Q2

REPORT INFORMATION
  Report Type: Spontaneous
  Country: US (occurrence: US)
  Receive Date: 20160330
  Receipt Date: 20160408
  Transmission Date: 20160815
  Serious: Yes (Other)
  Sender: FDA-Public Use
  Company Number: US-LUNDBECK-DKLU2011647

PATIENT
  Sex: Male

DRUGS (7)
  1. ONFI [Suspect]
     Active Substance: CLOBAZAM
     Route: 065
  2. ONFI [Suspect]
     Active Substance: CLOBAZAM
     Indication: EPILEPSY
     Route: 065
     Dates: start: 20150801
  3. FRISIUM [Suspect]
     Active Substance: CLOBAZAM
     Indication: SEIZURE
     Route: 065
  4. ONFI [Suspect]
     Active Substance: CLOBAZAM
     Route: 065
  5. ONFI [Suspect]
     Active Substance: CLOBAZAM
     Route: 065
     Dates: start: 20150804, end: 20160327
  6. CANNABIDOL [Concomitant]
     Indication: SEIZURE
     Route: 065
     Dates: start: 2016, end: 20160318
  7. TRILEPTAL [Concomitant]
     Active Substance: OXCARBAZEPINE
     Indication: SEIZURE
     Route: 065
     Dates: start: 20160323

REACTIONS (8)
  - Hypersomnia [Unknown]
  - Fatigue [Unknown]
  - Drug effect decreased [Unknown]
  - Pallor [Recovered/Resolved]
  - Loss of consciousness [Unknown]
  - Hypotonia [Unknown]
  - Hypophagia [Not Recovered/Not Resolved]
  - Drug withdrawal convulsions [Unknown]
